FAERS Safety Report 15974710 (Version 1)
Quarter: 2019Q1

REPORT INFORMATION
  Report Type: Spontaneous
  Country: US (occurrence: US)
  Receive Date: 20190218
  Receipt Date: 20190218
  Transmission Date: 20190418
  Serious: No
  Sender: FDA-Public Use
  Company Number: US-TEVA-2019-US-1014625

PATIENT
  Age: 78 Year
  Sex: Female

DRUGS (1)
  1. AJOVY [Suspect]
     Active Substance: FREMANEZUMAB-VFRM
     Dosage: 225MG MONTHLY
     Route: 058

REACTIONS (5)
  - Pain in extremity [Unknown]
  - Paraesthesia [Unknown]
  - Fasciitis [Unknown]
  - Gait inability [Unknown]
  - Drug effect incomplete [Unknown]
